FAERS Safety Report 6648985-7 (Version None)
Quarter: 2010Q1

REPORT INFORMATION
  Report Type: 
  Country: None (occurrence: None)
  Receive Date: 20100324
  Receipt Date: 20100322
  Transmission Date: 20100710
  Serious: Yes (Other)
  Sender: FDA-Public Use
  Company Number: GXKR2010DE00671

PATIENT
  Sex: Female

DRUGS (12)
  1. LAMOTRIGIN HEXAL (NGX) [Suspect]
     Indication: DEPRESSION
     Dosage: 100 MG, BID
     Route: 048
  2. AMITRIPTYLINE ^NEURAXPHARM^ [Concomitant]
     Dosage: 25 MG, QHS
     Route: 048
  3. THYRONAJOD [Concomitant]
     Dosage: 125 UG, QD
     Route: 048
  4. METOPROLOL ^RATIOPHARM^ [Concomitant]
     Dosage: 100 MG - 0 - 50 MG DAILY
     Route: 048
  5. ACETYLSALICYLIC ACID [Concomitant]
     Dosage: 100 MG, QD
     Route: 048
  6. VITAMIN C [Concomitant]
     Route: 048
  7. OPTOVIT [Concomitant]
     Route: 048
  8. SELENASE [Concomitant]
     Route: 048
  9. WOBENZYM [Concomitant]
     Route: 048
  10. ZINK [Concomitant]
     Route: 048
  11. CALCIUM ^ALIUD PHARMA^ [Concomitant]
  12. VITAMIN D [Concomitant]

REACTIONS (10)
  - ARRHYTHMIA [None]
  - ATRIAL FIBRILLATION [None]
  - BONE DENSITY DECREASED [None]
  - DEPRESSION [None]
  - HEPATIC ENZYME ABNORMAL [None]
  - HEPATIC STEATOSIS [None]
  - SKIN DISORDER [None]
  - URINARY INCONTINENCE [None]
  - URINE ANALYSIS ABNORMAL [None]
  - WEIGHT INCREASED [None]
